FAERS Safety Report 11968821 (Version 1)
Quarter: 2016Q1

REPORT INFORMATION
  Report Type: Spontaneous
  Country: US (occurrence: None)
  Receive Date: 20160126
  Receipt Date: 20160126
  Transmission Date: 20160526
  Serious: No
  Sender: FDA-Public Use
  Company Number: None

PATIENT
  Age: 63 Year
  Sex: Male

DRUGS (1)
  1. INLYTA [Suspect]
     Active Substance: AXITINIB
     Indication: NEOPLASM MALIGNANT
     Route: 048

REACTIONS (6)
  - Fatigue [None]
  - Erythema [None]
  - Skin atrophy [None]
  - Decreased appetite [None]
  - Diarrhoea [None]
  - Dyspepsia [None]
